FAERS Safety Report 6714120-X (Version None)
Quarter: 2010Q2

REPORT INFORMATION
  Report Type: 
  Country: None (occurrence: None)
  Receive Date: 20100503
  Receipt Date: 20100421
  Transmission Date: 20101027
  Serious: Yes (Hospitalization)
  Sender: FDA-Public Use
  Company Number: 199734

PATIENT
  Age: 59 Year
  Sex: Male
  Weight: 70 kg

DRUGS (17)
  1. CYTARABINE [Suspect]
     Indication: ACUTE MYELOID LEUKAEMIA
     Dates: start: 20080811
  2. INVESTIGATIONAL DRUG [Suspect]
     Indication: ACUTE MYELOID LEUKAEMIA
     Dosage: 10 MG 1 DAY; ORAL
     Route: 048
     Dates: start: 20080818, end: 20080826
  3. VORTICONAZOLE [Concomitant]
  4. LEVOFLOXACIN [Concomitant]
  5. TOBRAMYCIN [Concomitant]
  6. VANCOMYCIN HCL INJ [Concomitant]
  7. ACYCLOVIR SODIUM [Concomitant]
  8. CIPROFLOXACIN [Concomitant]
  9. AMOXICILLIN [Concomitant]
  10. FAMCICLOVIR [Concomitant]
  11. CELECOXIB [Concomitant]
  12. DIPHENHYDRAMINE [Concomitant]
  13. HYDROCORTISONE SODIUM SUCCINATE [Concomitant]
  14. GRANISETRON [Concomitant]
  15. NORMAL SALINE [Concomitant]
  16. ALLOPURINOL [Concomitant]
  17. PREDNISOLONE SODIUM PHOSPHATE [Concomitant]

REACTIONS (15)
  - ACUTE ABDOMEN [None]
  - ATELECTASIS [None]
  - ATRIAL FIBRILLATION [None]
  - CLOSTRIDIUM BACTERAEMIA [None]
  - COLITIS [None]
  - DIVERTICULITIS [None]
  - ENTEROCOLITIS [None]
  - ESCHERICHIA BACTERAEMIA [None]
  - NEUTROPENIC COLITIS [None]
  - PANCYTOPENIA [None]
  - PERICARDIAL EFFUSION [None]
  - PLEURAL EFFUSION [None]
  - PULMONARY FIBROSIS [None]
  - PYREXIA [None]
  - TACHYCARDIA [None]
